FAERS Safety Report 8150141-0 (Version None)
Quarter: 2012Q1

REPORT INFORMATION
  Report Type: 
  Country: None (occurrence: None)
  Receive Date: 20120220
  Receipt Date: 20120209
  Transmission Date: 20120608
  Serious: Yes (Hospitalization)
  Sender: FDA-Public Use
  Company Number: US-BIOGENIDEC-2012BI005028

PATIENT
  Age: 32 Year
  Sex: Female

DRUGS (3)
  1. SEIZURE MEDS (NOS) [Concomitant]
     Indication: CONVULSION
     Dates: start: 20080101
  2. AVONEX [Suspect]
     Indication: MULTIPLE SCLEROSIS
     Route: 030
     Dates: start: 20100908
  3. ASCORBIC ACID [Concomitant]

REACTIONS (8)
  - POSTICTAL STATE [None]
  - INJECTION SITE HAEMATOMA [None]
  - URINARY TRACT INFECTION [None]
  - CONVULSION [None]
  - PLATELET COUNT DECREASED [None]
  - PAIN [None]
  - HERPES ZOSTER [None]
  - INFLUENZA LIKE ILLNESS [None]
